FAERS Safety Report 12691996 (Version 1)
Quarter: 2016Q3

REPORT INFORMATION
  Report Type: Spontaneous
  Country: US (occurrence: US)
  Receive Date: 20160827
  Receipt Date: 20160827
  Transmission Date: 20161109
  Serious: No
  Sender: FDA-Public Use
  Company Number: US-AMGEN-USASP2016108146

PATIENT
  Age: 42 Year
  Sex: Female

DRUGS (14)
  1. CALCIUM CITRATE W/COLECALCIFEROL [Concomitant]
  2. LISINOPRIL. [Concomitant]
     Active Substance: LISINOPRIL
  3. OMEGA-500 [Concomitant]
     Dosage: 500 UNK, UNK
  4. EFFEXOR [Concomitant]
     Active Substance: VENLAFAXINE HYDROCHLORIDE
  5. VITAMIN D [Concomitant]
     Active Substance: CHOLECALCIFEROL
  6. BUPROPION HCL [Concomitant]
     Active Substance: BUPROPION HYDROCHLORIDE
  7. LEFLUNOMIDE. [Concomitant]
     Active Substance: LEFLUNOMIDE
  8. RANITIDINE. [Concomitant]
     Active Substance: RANITIDINE
  9. ZYRTEC [Concomitant]
     Active Substance: CETIRIZINE HYDROCHLORIDE
  10. FOSAMAX [Concomitant]
     Active Substance: ALENDRONATE SODIUM
  11. PREDNISONE. [Concomitant]
     Active Substance: PREDNISONE
  12. SINGULAIR [Concomitant]
     Active Substance: MONTELUKAST SODIUM
  13. ENBREL [Suspect]
     Active Substance: ETANERCEPT
     Indication: RHEUMATOID ARTHRITIS
     Dosage: 50 MG, QWK
     Route: 058
  14. OMEPRAZOLE. [Concomitant]
     Active Substance: OMEPRAZOLE

REACTIONS (1)
  - Treatment failure [Unknown]

NARRATIVE: CASE EVENT DATE: 2014
